FAERS Safety Report 4988798-5 (Version None)
Quarter: 2006Q2

REPORT INFORMATION
  Report Type: 
  Country: None (occurrence: None)
  Receive Date: 20060502
  Receipt Date: 20060131
  Transmission Date: 20061013
  Serious: Yes (Hospitalization, Disabling)
  Sender: FDA-Public Use
  Company Number: US-MERCK-0602USA00065

PATIENT
  Age: 58 Year
  Sex: Male
  Weight: 81 kg

DRUGS (2)
  1. VIOXX [Suspect]
     Indication: SPONDYLITIS
     Route: 048
     Dates: start: 20010326, end: 20010808
  2. ASPIRIN [Concomitant]
     Route: 065

REACTIONS (8)
  - ANHEDONIA [None]
  - ANXIETY [None]
  - CEREBRAL ARTERY OCCLUSION [None]
  - EMOTIONAL DISTRESS [None]
  - FEAR OF DISEASE [None]
  - HYPOAESTHESIA [None]
  - MENTAL DISORDER [None]
  - PAIN [None]
